FAERS Safety Report 12295359 (Version 1)
Quarter: 2016Q2

REPORT INFORMATION
  Report Type: Spontaneous
  Country: US (occurrence: US)
  Receive Date: 20160422
  Receipt Date: 20160422
  Transmission Date: 20160815
  Serious: No
  Sender: FDA-Public Use
  Company Number: US-PURDUE-USA-2015-0129218

PATIENT
  Sex: Male

DRUGS (2)
  1. LINACLOTIDE [Interacting]
     Active Substance: LINACLOTIDE
     Indication: CONSTIPATION
     Dosage: 145 UNK, UNK
     Route: 048
  2. OXYCONTIN [Suspect]
     Active Substance: OXYCODONE HYDROCHLORIDE
     Indication: PRODUCT USED FOR UNKNOWN INDICATION
     Route: 048

REACTIONS (1)
  - Drug interaction [Not Recovered/Not Resolved]
